FAERS Safety Report 4915980-5 (Version None)
Quarter: 2006Q1

REPORT INFORMATION
  Report Type: 
  Country: None (occurrence: None)
  Receive Date: 20060217
  Receipt Date: 20060214
  Transmission Date: 20060701
  Serious: Yes (Death)
  Sender: FDA-Public Use
  Company Number: DE-GILEAD-2006-0009220

PATIENT
  Sex: Male
  Weight: 45.6 kg

DRUGS (1)
  1. TRUVADA [Suspect]
     Indication: HIV INFECTION
     Route: 048
     Dates: start: 20050830, end: 20060205

REACTIONS (3)
  - B-CELL LYMPHOMA [None]
  - COMA HEPATIC [None]
  - KAPOSI'S SARCOMA [None]
